FAERS Safety Report 7465084-5 (Version None)
Quarter: 2011Q2

REPORT INFORMATION
  Report Type: 
  Country: None (occurrence: None)
  Receive Date: 20110509
  Receipt Date: 20110504
  Transmission Date: 20111010
  Serious: Yes (Hospitalization)
  Sender: FDA-Public Use
  Company Number: US-ALLERGAN-1104858US

PATIENT
  Age: 47 Year
  Sex: Female
  Weight: 90.703 kg

DRUGS (10)
  1. BOTOX [Suspect]
     Indication: DYSKINESIA
     Dosage: UNK
     Dates: start: 20101201, end: 20101201
  2. SIMVASTATIN [Concomitant]
  3. NEXIUM [Concomitant]
  4. GEODON [Concomitant]
  5. XANAX [Concomitant]
  6. BOTOX [Suspect]
     Indication: BLEPHAROSPASM
     Dosage: 60 UNITS, SINGLE
     Route: 030
     Dates: start: 20110329, end: 20110329
  7. SEROQUEL [Concomitant]
  8. COGENTIN [Concomitant]
  9. LYRICA [Concomitant]
  10. ZOLOFT [Concomitant]

REACTIONS (3)
  - ASTHMA [None]
  - DYSPNOEA [None]
  - SLEEP APNOEA SYNDROME [None]
